FAERS Safety Report 24014477 (Version 1)
Quarter: 2024Q2

REPORT INFORMATION
  Report Type: Spontaneous
  Country: US (occurrence: None)
  Receive Date: 20240626
  Receipt Date: 20240626
  Transmission Date: 20240716
  Serious: Yes (Hospitalization, Other)
  Sender: FDA-Public Use
  Company Number: 2024A142034

PATIENT
  Sex: Female

DRUGS (2)
  1. CALQUENCE [Suspect]
     Active Substance: ACALABRUTINIB
     Dosage: 1 TABLET EVERY 12 HOURS
     Route: 048
     Dates: start: 202304, end: 202308
  2. CALQUENCE [Suspect]
     Active Substance: ACALABRUTINIB
     Dosage: 1 TABLET DAILY
     Route: 048
     Dates: start: 202308

REACTIONS (14)
  - Blood potassium abnormal [Unknown]
  - Chronic lymphocytic leukaemia [Unknown]
  - Drug intolerance [Unknown]
  - Headache [Unknown]
  - Decreased appetite [Unknown]
  - Weight decreased [Unknown]
  - Trichorrhexis [Unknown]
  - Rash [Unknown]
  - Contusion [Unknown]
  - Anaemia [Unknown]
  - White blood cell count abnormal [Unknown]
  - Oedema [Unknown]
  - Weight increased [Unknown]
  - Hiatus hernia [Unknown]
